FAERS Safety Report 21571956 (Version 2)
Quarter: 2022Q4

REPORT INFORMATION
  Report Type: Report from Study
  Country: CA (occurrence: CA)
  Receive Date: 20221109
  Receipt Date: 20221209
  Transmission Date: 20230113
  Serious: No
  Sender: FDA-Public Use
  Company Number: CA-JNJFOC-20221053088

PATIENT
  Age: 49 Year
  Sex: Female

DRUGS (1)
  1. SIMPONI [Suspect]
     Active Substance: GOLIMUMAB
     Indication: Colitis ulcerative
     Dosage: STRENGTH: 100.00 MG/ML
     Route: 058

REACTIONS (2)
  - Needle issue [Unknown]
  - Underdose [Unknown]

NARRATIVE: CASE EVENT DATE: 20221001
